FAERS Safety Report 4295990-4 (Version None)
Quarter: 2004Q1

REPORT INFORMATION
  Report Type: 
  Country: None (occurrence: None)
  Receive Date: 20040212
  Receipt Date: 20040202
  Transmission Date: 20041129
  Serious: Yes (Hospitalization)
  Sender: FDA-Public Use
  Company Number: 04P-144-0249417-00

PATIENT
  Age: 38 Year
  Sex: Male

DRUGS (3)
  1. KALETRA [Suspect]
     Indication: HIV INFECTION
     Dosage: 6 CAPSULES, 1 IN 1 D, PER ORAL
     Route: 048
     Dates: start: 20031015
  2. DIDANOSINE [Concomitant]
  3. VIREAD [Concomitant]

REACTIONS (1)
  - ACUTE MYOCARDIAL INFARCTION [None]
